FAERS Safety Report 10833250 (Version 1)
Quarter: 2015Q1

REPORT INFORMATION
  Report Type: Spontaneous
  Country: US (occurrence: US)
  Receive Date: 20150219
  Receipt Date: 20150219
  Transmission Date: 20150721
  Serious: No
  Sender: FDA-Public Use
  Company Number: US-ABBVIE-14P-163-1199481-00

PATIENT
  Age: 72 Year
  Sex: Female
  Weight: 65.83 kg

DRUGS (5)
  1. HUMIRA [Suspect]
     Active Substance: ADALIMUMAB
     Indication: CROHN^S DISEASE
     Dates: start: 2009, end: 2009
  2. HUMIRA [Suspect]
     Active Substance: ADALIMUMAB
     Dates: start: 2009, end: 20140129
  3. ISRADIPINE. [Concomitant]
     Active Substance: ISRADIPINE
     Indication: BLOOD PRESSURE
  4. METOPROLOL [Concomitant]
     Active Substance: METOPROLOL
     Indication: BLOOD PRESSURE
  5. HUMIRA [Suspect]
     Active Substance: ADALIMUMAB
     Dates: start: 2009, end: 2009

REACTIONS (2)
  - Psoriasis [Recovering/Resolving]
  - Psoriasis [Not Recovered/Not Resolved]

NARRATIVE: CASE EVENT DATE: 2009
